FAERS Safety Report 15423425 (Version 1)
Quarter: 2018Q3

REPORT INFORMATION
  Report Type: Spontaneous
  Country: BG (occurrence: BG)
  Receive Date: 20180925
  Receipt Date: 20180925
  Transmission Date: 20181010
  Serious: Yes (Life-Threatening, Hospitalization, Other)
  Sender: FDA-Public Use
  Company Number: BG-AUROBINDO-AUR-APL-2018-046356

PATIENT
  Age: 44 Year
  Sex: Female

DRUGS (3)
  1. OLANZAPINE. [Suspect]
     Active Substance: OLANZAPINE
     Indication: SCHIZOPHRENIA
     Dosage: 5 MILLIGRAM,FOR 3?4 MONTHS
     Route: 065
  2. ARIPIPRAZOLE. [Suspect]
     Active Substance: ARIPIPRAZOLE
     Indication: SCHIZOPHRENIA
     Dosage: 15 MILLIGRAM, DAILY,(ARIPIPRAZOLE 15 MG (0?0?1))
     Route: 065
  3. BIPERIDEN HYDROCHLORIDE [Concomitant]
     Active Substance: BIPERIDEN HYDROCHLORIDE
     Indication: SCHIZOPHRENIA
     Dosage: 2 MILLIGRAM, TWO TIMES A DAY,(BIPERIDEN HYDROCHLORIDE 2 MG (1?1?0))
     Route: 065

REACTIONS (1)
  - Malignant melanoma stage III [Unknown]
